FAERS Safety Report 11106392 (Version 1)
Quarter: 2015Q2

REPORT INFORMATION
  Report Type: Spontaneous
  Country: US (occurrence: None)
  Receive Date: 20150511
  Receipt Date: 20150511
  Transmission Date: 20150821
  Serious: Yes (Hospitalization)
  Sender: FDA-Public Use
  Company Number: None

PATIENT
  Age: 4 Year
  Sex: Female
  Weight: 16 kg

DRUGS (4)
  1. METHOTREXATE [Suspect]
     Active Substance: METHOTREXATE
     Dates: end: 20150424
  2. DAUNORUBICIN [Suspect]
     Active Substance: DAUNORUBICIN
     Dates: end: 20150424
  3. ONCASPAR [Suspect]
     Active Substance: PEGASPARGASE
     Dates: end: 20150420
  4. CYTARABINE. [Suspect]
     Active Substance: CYTARABINE
     Dates: end: 20150417

REACTIONS (9)
  - Somnolence [None]
  - Blood culture positive [None]
  - Hydrocephalus [None]
  - Bacillus infection [None]
  - Haemorrhage [None]
  - Seizure [None]
  - Unresponsive to stimuli [None]
  - Platelet count decreased [None]
  - Pyrexia [None]

NARRATIVE: CASE EVENT DATE: 20150430
